FAERS Safety Report 16347970 (Version 1)
Quarter: 2019Q2

REPORT INFORMATION
  Report Type: Spontaneous
  Country: US (occurrence: US)
  Receive Date: 20190523
  Receipt Date: 20190523
  Transmission Date: 20190711
  Serious: No
  Sender: FDA-Public Use
  Company Number: US-IGSA-SR10007426

PATIENT
  Age: 46 Year
  Sex: Female
  Weight: 100 kg

DRUGS (6)
  1. GAMUNEX-C [Suspect]
     Active Substance: HUMAN IMMUNOGLOBULIN G
     Indication: CHRONIC INFLAMMATORY DEMYELINATING POLYRADICULONEUROPATHY
     Dosage: 100 G, Q.4WK.
     Route: 042
     Dates: start: 20181126, end: 20181126
  2. MOTRIN [Concomitant]
     Active Substance: IBUPROFEN
     Indication: PREMEDICATION
     Dosage: 600 MG, UNK
     Dates: start: 20181126, end: 20181126
  3. BENADRYL [Concomitant]
     Active Substance: DIPHENHYDRAMINE HYDROCHLORIDE
     Indication: PREMEDICATION
     Dosage: 50 MG, UNK
     Dates: start: 20181126, end: 20181126
  4. GAMUNEX-C [Suspect]
     Active Substance: HUMAN IMMUNOGLOBULIN G
     Dosage: UNK, Q.4WK.
     Route: 042
     Dates: start: 20181127
  5. GAMUNEX-C [Suspect]
     Active Substance: HUMAN IMMUNOGLOBULIN G
     Dosage: UNK, Q.4WK.
     Route: 042
     Dates: start: 201711
  6. DEXTROSE 5% [Concomitant]
     Active Substance: DEXTROSE
     Indication: PREMEDICATION
     Dosage: UNK
     Route: 042
     Dates: start: 20181126, end: 20181126

REACTIONS (3)
  - Urticaria [Recovered/Resolved]
  - Rash [Recovered/Resolved]
  - Pruritus [Recovered/Resolved]

NARRATIVE: CASE EVENT DATE: 20181126
